FAERS Safety Report 4393077-3 (Version None)
Quarter: 2004Q3

REPORT INFORMATION
  Report Type: 
  Country: None (occurrence: None)
  Receive Date: 20040702
  Receipt Date: 20040407
  Transmission Date: 20050211
  Serious: Yes (Other)
  Sender: FDA-Public Use
  Company Number: 2004UW07051

PATIENT
  Age: 68 Year
  Sex: Female
  Weight: 77.1115 kg

DRUGS (9)
  1. CRESTOR [Suspect]
     Indication: BLOOD CHOLESTEROL INCREASED
     Dosage: 10 MG PO
     Route: 048
     Dates: start: 20040301
  2. VASOTEC [Concomitant]
  3. HYDROCHLOROTHIAZIDE [Concomitant]
  4. NO MATCH [Concomitant]
  5. METOPROLOL [Concomitant]
  6. PAXIL [Concomitant]
  7. POTASSIUM [Concomitant]
  8. OSCAL [Concomitant]
  9. AMBIEN [Concomitant]

REACTIONS (2)
  - FATIGUE [None]
  - NERVOUSNESS [None]
